FAERS Safety Report 6295445-1 (Version None)
Quarter: 2009Q3

REPORT INFORMATION
  Report Type: 
  Country: None (occurrence: None)
  Receive Date: 20090730
  Receipt Date: 20090714
  Transmission Date: 20100115
  Serious: Yes (Life-Threatening)
  Sender: FDA-Public Use
  Company Number: GXKR2009GB07979

PATIENT
  Age: 54 Year
  Sex: Male

DRUGS (7)
  1. METFORMIN HCL [Suspect]
     Indication: DIABETES MELLITUS
     Dosage: ORAL
     Route: 048
  2. SIMVASTATIN [Suspect]
     Indication: BLOOD CHOLESTEROL INCREASED
     Dosage: ORAL
     Route: 048
  3. CO-CODAMOL (NGX) (ACETAMINOPHEN  (PARACETAMOL), CODEINE PHOSPHATE) UNK [Suspect]
     Indication: ANALGESIA
     Dosage: 2 DF, ORAL
     Route: 048
  4. HUMIRA [Suspect]
     Indication: PSORIATIC ARTHROPATHY
     Dosage: 40 MG, BIW, SUBCUTANEOUS
     Route: 058
     Dates: start: 20070213, end: 20080930
  5. TERBINAFINE HCL [Suspect]
     Indication: FUNGAL INFECTION
     Dosage: BID, ORAL
     Route: 048
  6. SILDENAFIL CITRATE [Suspect]
     Indication: ERECTILE DYSFUNCTION
     Dosage: 25 MG,
  7. ASPIRIN [Concomitant]

REACTIONS (6)
  - EPSTEIN-BARR VIRUS ANTIBODY POSITIVE [None]
  - HODGKIN'S DISEASE MIXED CELLULARITY STAGE UNSPECIFIED [None]
  - ONYCHOMYCOSIS [None]
  - PYREXIA [None]
  - TOOTH ABSCESS [None]
  - WEIGHT INCREASED [None]
